FAERS Safety Report 11637500 (Version 2)
Quarter: 2015Q4

REPORT INFORMATION
  Report Type: Report from Study
  Country: ZA (occurrence: ZA)
  Receive Date: 20151016
  Receipt Date: 20151103
  Transmission Date: 20160304
  Serious: Yes (Other)
  Sender: FDA-Public Use
  Company Number: ZA-GILEAD-2015-0176365

PATIENT
  Age: 21 Year
  Sex: Female

DRUGS (1)
  1. EMTRICITABINE/TENOFOVIR DISOPROXIL FUMARATE [Suspect]
     Active Substance: EMTRICITABINE\TENOFOVIR DISOPROXIL
     Indication: PROPHYLAXIS AGAINST HIV INFECTION
     Dosage: 1 DF, QD
     Route: 048
     Dates: start: 200908, end: 20100709

REACTIONS (1)
  - Hepatitis B [Recovered/Resolved]

NARRATIVE: CASE EVENT DATE: 20100709
